FAERS Safety Report 6539597-4 (Version None)
Quarter: 2010Q1

REPORT INFORMATION
  Report Type: 
  Country: None (occurrence: None)
  Receive Date: 20100115
  Receipt Date: 20100104
  Transmission Date: 20100710
  Serious: Yes (Death)
  Sender: FDA-Public Use
  Company Number: US-PFIZER INC-2010001658

PATIENT
  Age: 67 Year
  Sex: Female

DRUGS (5)
  1. ALPRAZOLAM [Suspect]
     Dosage: UNK
  2. DIAZEPAM [Suspect]
     Dosage: UNK
  3. METOPROLOL [Suspect]
     Dosage: UNK
  4. FENTANYL [Suspect]
     Dosage: UNK
  5. VALSARTAN [Suspect]
     Dosage: UNK

REACTIONS (4)
  - CARDIAC ARREST [None]
  - DEATH [None]
  - DRUG TOXICITY [None]
  - RESPIRATORY ARREST [None]
